FAERS Safety Report 22889947 (Version 9)
Quarter: 2023Q4

REPORT INFORMATION
  Report Type: Report from Study
  Country: TR (occurrence: TR)
  Receive Date: 20230831
  Receipt Date: 20231117
  Transmission Date: 20240109
  Serious: Yes (Hospitalization)
  Sender: FDA-Public Use
  Company Number: TR-PFIZER INC-202300262255

PATIENT
  Age: 46 Year
  Sex: Female
  Weight: 49 kg

DRUGS (5)
  1. ELRANATAMAB [Suspect]
     Active Substance: ELRANATAMAB
     Indication: Plasma cell myeloma
     Dosage: 76.0 MG, WEEKLY
     Route: 058
     Dates: start: 20230505, end: 20230505
  2. ELRANATAMAB [Suspect]
     Active Substance: ELRANATAMAB
     Dosage: 76.0 MG, WEEKLY
     Route: 058
     Dates: start: 20230517, end: 20230517
  3. ELRANATAMAB [Suspect]
     Active Substance: ELRANATAMAB
     Dosage: 76.0 MG, WEEKLY
     Route: 058
     Dates: start: 20230531, end: 20230531
  4. ELRANATAMAB [Suspect]
     Active Substance: ELRANATAMAB
     Dosage: 76.0 MG, EVERY 2 WEEKS
     Route: 058
     Dates: start: 20230612, end: 20230612
  5. POTASYUM KLORUR [Concomitant]
     Indication: Hypokalaemia
     Dosage: 40 ML, 2X/DAY
     Route: 042
     Dates: start: 20230707, end: 20230712

REACTIONS (2)
  - Blood creatinine increased [Recovered/Resolved]
  - Hypokalaemia [Recovered/Resolved]

NARRATIVE: CASE EVENT DATE: 20230727
